FAERS Safety Report 5167161-0 (Version None)
Quarter: 2006Q4

REPORT INFORMATION
  Report Type: 
  Country: None (occurrence: None)
  Receive Date: 20061130
  Receipt Date: 20061129
  Transmission Date: 20070319
  Serious: Yes (Other)
  Sender: FDA-Public Use
  Company Number: GBWYE114104OCT06

PATIENT
  Age: 56 Year
  Sex: Female

DRUGS (8)
  1. EFFEXOR XR [Suspect]
     Indication: DEPRESSION
     Dosage: SEE IMAGE
     Route: 048
     Dates: end: 20060101
  2. EFFEXOR XR [Suspect]
     Indication: DEPRESSION
     Dosage: SEE IMAGE
     Route: 048
     Dates: start: 20060725
  3. LITHIUM CARBONATE [Concomitant]
  4. TRIFLUOPERAZINE HCL [Concomitant]
  5. TEMAZEPAM [Concomitant]
  6. THYROXINE I 125 [Concomitant]
  7. DIHYDROCODEINE BITARTRATE INJ [Concomitant]
  8. ATORVASTATIN [Concomitant]

REACTIONS (1)
  - DROP ATTACKS [None]
